FAERS Safety Report 5252131-4 (Version None)
Quarter: 2007Q1

REPORT INFORMATION
  Report Type: 
  Country: None (occurrence: None)
  Receive Date: 20070227
  Receipt Date: 20061108
  Transmission Date: 20070707
  Serious: Yes (Other)
  Sender: FDA-Public Use
  Company Number: CHNY2006CA03563

PATIENT

DRUGS (1)
  1. HABITROL [Suspect]
     Dosage: 6 PATCHES 21 MG ONCE, TRANSDERMAL
     Route: 062

REACTIONS (3)
  - INTENTIONAL OVERDOSE [None]
  - SUICIDE ATTEMPT [None]
  - TREATMENT NONCOMPLIANCE [None]
